FAERS Safety Report 13719863 (Version 2)
Quarter: 2017Q3

REPORT INFORMATION
  Report Type: Spontaneous
  Country: JP (occurrence: JP)
  Receive Date: 20170705
  Receipt Date: 20170724
  Transmission Date: 20171127
  Serious: Yes (Hospitalization, Other)
  Sender: FDA-Public Use
  Company Number: JP-BAUSCH-BL-2017-018754

PATIENT
  Age: 85 Year
  Sex: Male

DRUGS (4)
  1. CISPLATIN. [Suspect]
     Active Substance: CISPLATIN
     Indication: METASTATIC SQUAMOUS CELL CARCINOMA
     Dosage: DAY 1; TOTAL OF 3 COURSES, (1-3 CYCLES), WITH 1 COURSE BEING 3 WEEKS
     Route: 065
     Dates: start: 2013
  2. CETUXIMAB. [Suspect]
     Active Substance: CETUXIMAB
     Dosage: A TOTAL OF 3 COURSES, (1-3 CYCLES), WITH 1 COURSE BEING 3 WEEKS
     Route: 065
     Dates: start: 2013
  3. FLUOROURACIL. [Suspect]
     Active Substance: FLUOROURACIL
     Indication: METASTATIC SQUAMOUS CELL CARCINOMA
     Dosage: DAYS 1-4; TOTAL OF 3 COURSES, (1-3 CYCLES), WITH 1 COURSE BEING 3 WEEKS
     Route: 065
     Dates: start: 2013
  4. CETUXIMAB. [Suspect]
     Active Substance: CETUXIMAB
     Indication: METASTATIC SQUAMOUS CELL CARCINOMA
     Dosage: TOTAL OF 3 COURSES, (1-3 CYCLES), WITH 1 COURSE BEING 3 WEEKS
     Route: 065
     Dates: start: 2013

REACTIONS (2)
  - Hyponatraemia [Recovered/Resolved]
  - Decreased appetite [Unknown]

NARRATIVE: CASE EVENT DATE: 2013
